FAERS Safety Report 6672043-9 (Version None)
Quarter: 2010Q2

REPORT INFORMATION
  Report Type: 
  Country: None (occurrence: None)
  Receive Date: 20100406
  Receipt Date: 20100329
  Transmission Date: 20101027
  Serious: Yes (Other)
  Sender: FDA-Public Use
  Company Number: 2010SP018759

PATIENT
  Age: 12 Year
  Sex: Male

DRUGS (2)
  1. AERIUS REDITABS (DESLORATADINE) [Suspect]
     Indication: RHINITIS SEASONAL
     Dosage: 5 MG, QD; PO
     Route: 048
     Dates: start: 20100301, end: 20100325
  2. DESLORATADINE [Suspect]
     Indication: RHINITIS SEASONAL
     Dosage: PO
     Route: 048
     Dates: end: 20100301

REACTIONS (6)
  - CONDITION AGGRAVATED [None]
  - DYSPNOEA [None]
  - EYE OEDEMA [None]
  - NASAL OEDEMA [None]
  - PHARYNGEAL OEDEMA [None]
  - RHINITIS [None]
